FAERS Safety Report 20764354 (Version 1)
Quarter: 2022Q2

REPORT INFORMATION
  Report Type: Spontaneous
  Country: US (occurrence: US)
  Receive Date: 20220428
  Receipt Date: 20220428
  Transmission Date: 20220721
  Serious: No
  Sender: FDA-Public Use
  Company Number: US-PFIZER INC-202200404258

PATIENT
  Age: 68 Year
  Sex: Female

DRUGS (1)
  1. IBRANCE [Suspect]
     Active Substance: PALBOCICLIB
     Dosage: 125 MG, CYCLIC (DAILY FOR 21 DAYS ON, FOLLOWED BY 7 DAYS OFF)
     Route: 048

REACTIONS (5)
  - Bone pain [Unknown]
  - Muscle spasms [Unknown]
  - Fatigue [Unknown]
  - White blood cell count decreased [Unknown]
  - Feeling abnormal [Unknown]
